FAERS Safety Report 6541867-0 (Version None)
Quarter: 2010Q1

REPORT INFORMATION
  Report Type: 
  Country: None (occurrence: None)
  Receive Date: 20100119
  Receipt Date: 20100112
  Transmission Date: 20100710
  Serious: Yes (Other)
  Sender: FDA-Public Use
  Company Number: FR-RB-007559-08

PATIENT
  Sex: Male

DRUGS (2)
  1. SUBUTEX [Suspect]
     Route: 060
  2. SUBUTEX [Suspect]
     Route: 060

REACTIONS (2)
  - ANXIETY [None]
  - SUICIDAL IDEATION [None]
